FAERS Safety Report 8100940-6 (Version None)
Quarter: 2012Q1

REPORT INFORMATION
  Report Type: 
  Country: None (occurrence: None)
  Receive Date: 20120129
  Receipt Date: 20110919
  Transmission Date: 20120608
  Serious: Yes (Hospitalization)
  Sender: FDA-Public Use
  Company Number: US-ABBOTT-11P-163-0856399-00

PATIENT
  Sex: Male

DRUGS (1)
  1. HUMIRA [Suspect]
     Indication: RHEUMATOID ARTHRITIS
     Dates: start: 20110322

REACTIONS (6)
  - CERVICAL VERTEBRAL FRACTURE [None]
  - MEMORY IMPAIRMENT [None]
  - RIB FRACTURE [None]
  - PAIN IN EXTREMITY [None]
  - VISION BLURRED [None]
  - ROAD TRAFFIC ACCIDENT [None]
